FAERS Safety Report 7247514-7 (Version None)
Quarter: 2011Q1

REPORT INFORMATION
  Report Type: 
  Country: None (occurrence: None)
  Receive Date: 20110127
  Receipt Date: 20110124
  Transmission Date: 20110831
  Serious: Yes (Life-Threatening, Hospitalization, Disabling)
  Sender: FDA-Public Use
  Company Number: BE-ROCHE-753292

PATIENT
  Sex: Female
  Weight: 57 kg

DRUGS (12)
  1. ROACTEMRA [Suspect]
     Route: 042
     Dates: start: 20100506
  2. CRESTOR [Concomitant]
     Indication: HYPERCHOLESTEROLAEMIA
     Route: 048
  3. ATACAND [Concomitant]
     Indication: HYPERCHOLESTEROLAEMIA
     Route: 048
  4. MONTELUKAST SODIUM [Concomitant]
     Indication: ASTHMA
  5. ROACTEMRA [Suspect]
     Indication: RHEUMATOID ARTHRITIS
     Route: 042
     Dates: start: 20090720
  6. ROACTEMRA [Suspect]
     Route: 042
     Dates: start: 20100408
  7. ARAVA [Concomitant]
     Indication: RHEUMATOID ARTHRITIS
     Route: 048
     Dates: start: 20080101
  8. ROACTEMRA [Suspect]
     Route: 042
     Dates: start: 20100212
  9. MEDROL [Concomitant]
     Indication: RHEUMATOID ARTHRITIS
     Route: 048
     Dates: start: 20080101
  10. ISOPTIN [Concomitant]
     Indication: HYPERTENSION
  11. ROACTEMRA [Suspect]
     Route: 042
     Dates: start: 20100310
  12. SERETIDE [Concomitant]
     Indication: ASTHMA

REACTIONS (3)
  - SEPTIC SHOCK [None]
  - MULTI-ORGAN FAILURE [None]
  - PNEUMONIA [None]
